FAERS Safety Report 13671559 (Version 1)
Quarter: 2017Q2

REPORT INFORMATION
  Report Type: Spontaneous
  Country: US (occurrence: US)
  Receive Date: 20170620
  Receipt Date: 20170620
  Transmission Date: 20170830
  Serious: No
  Sender: FDA-Public Use
  Company Number: US-ROCHE-1460683

PATIENT
  Age: 88 Year
  Sex: Female

DRUGS (4)
  1. XELODA [Suspect]
     Active Substance: CAPECITABINE
     Indication: HEPATIC CANCER
  2. XELODA [Suspect]
     Active Substance: CAPECITABINE
     Indication: BREAST CANCER
     Dosage: 2 WEEKS ON, 1 WEEK OFF
     Route: 048
  3. XELODA [Suspect]
     Active Substance: CAPECITABINE
     Indication: BONE CANCER
  4. XELODA [Suspect]
     Active Substance: CAPECITABINE
     Indication: LUNG NEOPLASM MALIGNANT

REACTIONS (3)
  - Drug administration error [Unknown]
  - Dysphagia [Unknown]
  - Pain [Unknown]
